FAERS Safety Report 5234614-6 (Version None)
Quarter: 2007Q1

REPORT INFORMATION
  Report Type: 
  Country: None (occurrence: None)
  Receive Date: 20070209
  Receipt Date: 20070129
  Transmission Date: 20070707
  Serious: Yes (Other)
  Sender: FDA-Public Use
  Company Number: HQWYE376329SEP06

PATIENT
  Sex: Female
  Weight: 65.83 kg

DRUGS (2)
  1. PREMPHASE 14/14 [Suspect]
     Indication: MENOPAUSE
     Dosage: NOT SPECIFIED
     Dates: end: 20000101
  2. PREMPHASE 14/14 [Suspect]
     Dosage: NOT SPECIFIED
     Dates: end: 19980101

REACTIONS (2)
  - ALOPECIA [None]
  - HYPOACUSIS [None]
